FAERS Safety Report 6633069-4 (Version None)
Quarter: 2010Q1

REPORT INFORMATION
  Report Type: 
  Country: None (occurrence: None)
  Receive Date: 20100312
  Receipt Date: 20100304
  Transmission Date: 20100710
  Serious: Yes (Hospitalization)
  Sender: FDA-Public Use
  Company Number: SE-ROCHE-689192

PATIENT
  Age: 52 Year
  Sex: Male

DRUGS (2)
  1. COPEGUS [Suspect]
     Dosage: DOSE: 1 GMD, DRUG NAME: COPGUS FC TAB 200 MG
     Route: 048
     Dates: start: 20091031, end: 20091101
  2. METADON [Suspect]
     Indication: PROPHYLAXIS
     Dosage: DOSE: 100 MGD, DRUG NAME: METADON RECIP TABL ,STOP DATE: MEDICATINO CONTINUED
     Route: 048
     Dates: start: 19860101

REACTIONS (3)
  - GRAND MAL CONVULSION [None]
  - MUSCLE SPASMS [None]
  - VENTRICULAR FIBRILLATION [None]
